FAERS Safety Report 16924846 (Version 2)
Quarter: 2020Q2

REPORT INFORMATION
  Report Type: Spontaneous
  Country: TW (occurrence: TW)
  Receive Date: 20191016
  Receipt Date: 20200507
  Transmission Date: 20200713
  Serious: Yes (Hospitalization)
  Sender: FDA-Public Use
  Company Number: TW-CELGENEUS-TWN-20180603024

PATIENT
  Age: 79 Year
  Sex: Female
  Weight: 45 kg

DRUGS (36)
  1. SIMVASTATIN. [Concomitant]
     Active Substance: SIMVASTATIN
     Indication: HYPERLIPIDAEMIA
     Route: 048
  2. ESOMEPRAZOLE. [Concomitant]
     Active Substance: ESOMEPRAZOLE MAGNESIUM
     Indication: GASTROOESOPHAGEAL REFLUX DISEASE
     Dosage: 40 MILLIGRAM
     Route: 048
     Dates: start: 20180408
  3. CB OINTMENT [Concomitant]
     Indication: PROPHYLAXIS
     Route: 061
     Dates: start: 20180422, end: 20180422
  4. ACETAMINOPHEN. [Concomitant]
     Active Substance: ACETAMINOPHEN
     Indication: FEBRILE NEUTROPENIA
     Route: 048
     Dates: start: 20180417, end: 20180417
  5. CIPROFLOXACIN. [Concomitant]
     Active Substance: CIPROFLOXACIN
     Indication: INFECTION PROPHYLAXIS
     Dosage: 1000 MILLIGRAM
     Route: 048
     Dates: start: 20180412, end: 20180413
  6. CIPROFLOXACIN. [Concomitant]
     Active Substance: CIPROFLOXACIN
     Dosage: 500 MILLIGRAM
     Route: 048
     Dates: start: 20180524, end: 20180528
  7. MOXIFLOXACIN. [Concomitant]
     Active Substance: MOXIFLOXACIN
     Dosage: 400 MILLIGRAM
     Route: 048
     Dates: start: 20180703, end: 20180708
  8. AZACITIDINE. [Suspect]
     Active Substance: AZACITIDINE
     Route: 058
     Dates: start: 20180626
  9. AMLODIPINE BESILATE [Concomitant]
     Active Substance: AMLODIPINE BESYLATE
     Indication: HYPERTENSION
     Dosage: 2.5 MILLIGRAM
     Route: 048
     Dates: start: 20180401
  10. POSACONAZOLE [Concomitant]
     Active Substance: POSACONAZOLE
     Indication: PROPHYLAXIS
     Dosage: 300 MILLIGRAM
     Route: 048
     Dates: start: 20180413
  11. LEVOCETIRIZINE [Concomitant]
     Active Substance: LEVOCETIRIZINE
     Indication: RHINORRHOEA
     Dosage: 5 MILLIGRAM
     Route: 048
     Dates: start: 20180425, end: 20180503
  12. SENNOSIDES. [Concomitant]
     Active Substance: SENNOSIDES
     Indication: CONSTIPATION
     Dosage: 40 MILLIGRAM
     Route: 048
     Dates: start: 20180521, end: 20180523
  13. VENETOCLAX (VERUM) [Concomitant]
     Indication: ACUTE MYELOID LEUKAEMIA
     Dosage: 10 MILLIGRAM
     Route: 048
     Dates: start: 20180420, end: 20180420
  14. VENETOCLAX (VERUM) [Concomitant]
     Dosage: 20 MILLIGRAM
     Route: 048
     Dates: start: 20180421, end: 20180421
  15. VENETOCLAX (VERUM) [Concomitant]
     Dosage: 50 MILLIGRAM
     Route: 048
     Dates: start: 20180626
  16. CB OINTMENT [Concomitant]
     Indication: SKIN INFECTION
     Dosage: 1 APPLICATOR FULL
     Route: 061
     Dates: start: 20180422
  17. CIPROFLOXACIN. [Concomitant]
     Active Substance: CIPROFLOXACIN
     Dosage: 1000 MILLIGRAM
     Route: 048
     Dates: start: 20180419, end: 20180503
  18. LEVOCETIRIZINE [Concomitant]
     Active Substance: LEVOCETIRIZINE
     Indication: PRURITUS
  19. MEGASTROL ACETATE [Concomitant]
     Dosage: 400 MILLIGRAM
     Route: 048
     Dates: start: 20180621, end: 20180708
  20. LACTULOSE. [Concomitant]
     Active Substance: LACTULOSE
     Indication: CONSTIPATION
     Dosage: 40 MILLILITER
     Route: 048
     Dates: start: 20180524, end: 20180526
  21. MEGASTROL ACETATE [Concomitant]
     Indication: DECREASED APPETITE
     Dosage: 400 MILLIGRAM
     Route: 048
     Dates: start: 20180511, end: 20180523
  22. MEGASTROL ACETATE [Concomitant]
     Dosage: 160 MILLIGRAM
     Route: 048
     Dates: start: 20180524, end: 20180528
  23. MOXIFLOXACIN. [Concomitant]
     Active Substance: MOXIFLOXACIN
     Indication: INFECTION PROPHYLAXIS
     Dosage: 400 MILLIGRAM
     Route: 048
     Dates: start: 20180514, end: 20180527
  24. SENNOSIDES. [Concomitant]
     Active Substance: SENNOSIDES
     Dosage: 20 MILLIGRAM
     Route: 048
     Dates: start: 20180524, end: 20180528
  25. VENETOCLAX (VERUM) [Concomitant]
     Dosage: 50 MILLIGRAM
     Route: 048
     Dates: start: 20180422, end: 20180612
  26. ESOMEPRAZOLE. [Concomitant]
     Active Substance: ESOMEPRAZOLE MAGNESIUM
     Dosage: 40 MILLIGRAM
     Route: 048
     Dates: start: 20180612
  27. CB OINTMENT [Concomitant]
     Dosage: 1 APPLICATOR FULL
     Route: 061
     Dates: start: 20180521, end: 20180523
  28. ACETAMINOPHEN. [Concomitant]
     Active Substance: ACETAMINOPHEN
     Indication: OROPHARYNGEAL PAIN
     Route: 048
     Dates: start: 20180519, end: 20180519
  29. ACETAMINOPHEN. [Concomitant]
     Active Substance: ACETAMINOPHEN
     Route: 048
     Dates: start: 20180519, end: 20180521
  30. MEGASTROL ACETATE [Concomitant]
     Indication: DECREASED APPETITE
     Dosage: 800 MILLIGRAM
     Route: 048
     Dates: start: 20180425, end: 20180503
  31. AZACITIDINE. [Suspect]
     Active Substance: AZACITIDINE
     Indication: ACUTE MYELOID LEUKAEMIA
     Route: 058
     Dates: start: 20180420, end: 20180524
  32. ACETAMINOPHEN. [Concomitant]
     Active Substance: ACETAMINOPHEN
     Dosage: 1500 MILLIGRAM
     Route: 048
     Dates: start: 20180529, end: 20180531
  33. LEVOCETIRIZINE [Concomitant]
     Active Substance: LEVOCETIRIZINE
     Indication: PRODUCTIVE COUGH
     Dosage: 5 MILLIGRAM
     Route: 048
     Dates: start: 20180521, end: 20180523
  34. LEVOCETIRIZINE [Concomitant]
     Active Substance: LEVOCETIRIZINE
     Indication: RASH
     Dosage: 5 MILLIGRAM
     Route: 048
     Dates: start: 20180529, end: 20180606
  35. ALLOPURINOL. [Concomitant]
     Active Substance: ALLOPURINOL
     Indication: PROPHYLAXIS
     Route: 048
     Dates: start: 20180414, end: 20180503
  36. ACETAMINOPHEN. [Concomitant]
     Active Substance: ACETAMINOPHEN
     Indication: PYREXIA
     Dosage: 1500 MILLIGRAM
     Route: 048
     Dates: start: 20180417, end: 20180418

REACTIONS (2)
  - Bronchopulmonary aspergillosis [Recovered/Resolved]
  - Anal abscess [Recovered/Resolved]

NARRATIVE: CASE EVENT DATE: 20180531
